FAERS Safety Report 23193471 (Version 2)
Quarter: 2023Q4

REPORT INFORMATION
  Report Type: Other
  Country: US (occurrence: US)
  Receive Date: 20231116
  Receipt Date: 20231118
  Transmission Date: 20240109
  Serious: No
  Sender: FDA-Public Use
  Company Number: US-TRAVERE-2023TVT00437

PATIENT
  Age: 63 Year
  Sex: Female

DRUGS (7)
  1. FILSPARI [Suspect]
     Active Substance: SPARSENTAN
     Indication: Product used for unknown indication
     Route: 048
     Dates: start: 20230729
  2. FILSPARI [Suspect]
     Active Substance: SPARSENTAN
     Route: 048
     Dates: start: 20230812, end: 20230813
  3. FILSPARI [Suspect]
     Active Substance: SPARSENTAN
     Route: 048
     Dates: start: 20230829
  4. ALLOPURINOL [Concomitant]
     Active Substance: ALLOPURINOL
  5. PRAVASTATIN [Concomitant]
     Active Substance: PRAVASTATIN
  6. LASIX [Concomitant]
     Active Substance: FUROSEMIDE
  7. CLONAZEPAM [Concomitant]
     Active Substance: CLONAZEPAM

REACTIONS (3)
  - Rash pruritic [Unknown]
  - Joint swelling [Unknown]
  - Eyelid rash [Unknown]
